FAERS Safety Report 8888640 (Version 1)
Quarter: 2012Q4

REPORT INFORMATION
  Report Type: 
  Country: US (occurrence: US)
  Receive Date: 20121106
  Receipt Date: 20121106
  Transmission Date: 20130627
  Serious: Yes (Hospitalization)
  Sender: FDA-Public Use
  Company Number: US-GLAXOSMITHKLINE-A0815681A

PATIENT
  Age: 62 Year
  Sex: Male

DRUGS (1)
  1. ROSIGLITAZONE [Suspect]
     Indication: DIABETES MELLITUS
     Dosage: 4MG Twice per day
     Route: 048
     Dates: start: 1999

REACTIONS (6)
  - Myocardial infarction [Not Recovered/Not Resolved]
  - Catheterisation cardiac [Unknown]
  - Coronary artery bypass [Unknown]
  - Hypertension [Unknown]
  - Arterial occlusive disease [Unknown]
  - Myocardial ischaemia [Unknown]
